FAERS Safety Report 8764713 (Version 2)
Quarter: 2012Q4

REPORT INFORMATION
  Report Type: 
  Country: DZ (occurrence: DZ)
  Receive Date: 20120831
  Receipt Date: 20120926
  Transmission Date: 20130627
  Serious: Yes (Other)
  Sender: FDA-Public Use
  Company Number: DZ-PFIZER INC-2012213703

PATIENT
  Age: 55 Year
  Sex: Male

DRUGS (6)
  1. TAHOR [Suspect]
     Indication: DRESSLER^S SYNDROME
     Dosage: 10 mg, 1x/day
     Dates: start: 2006, end: 2011
  2. GLUCOPHAGE [Concomitant]
     Dosage: 850 mg, 2x/day
  3. AMAREL [Concomitant]
     Dosage: 2 DF, 1x/day
  4. TILDIEM [Concomitant]
     Dosage: 1 DF, 1x/day
  5. ATENOR [Concomitant]
     Dosage: 50 UNK, 1x/day
  6. ASPEGIC [Concomitant]
     Dosage: 100 UNK, 1x/day

REACTIONS (1)
  - Diplopia [Recovered/Resolved]
